FAERS Safety Report 13910946 (Version 2)
Quarter: 2017Q3

REPORT INFORMATION
  Report Type: Spontaneous
  Country: JP (occurrence: JP)
  Receive Date: 20170828
  Receipt Date: 20170918
  Transmission Date: 20171127
  Serious: Yes (Hospitalization)
  Sender: FDA-Public Use
  Company Number: JP-SUCAMPO PHARMACEUTICALS INC.-SPI201701039

PATIENT
  Age: 74 Year
  Sex: Male

DRUGS (4)
  1. PICOSULFATE [Concomitant]
     Active Substance: SODIUM PICOSULFATE
     Dosage: UNK
     Route: 048
  2. OTHER DRUGS FOR CONSTIPATION [Concomitant]
     Indication: CONSTIPATION
     Dosage: UNK
     Dates: start: 201601
  3. AMITIZA [Suspect]
     Active Substance: LUBIPROSTONE
     Indication: CONSTIPATION
     Dosage: UNK
     Route: 048
     Dates: start: 201601, end: 20170210
  4. DAIKENCHUTO [Concomitant]
     Active Substance: HERBALS
     Indication: CONSTIPATION
     Dosage: UNK
     Route: 048
     Dates: start: 201601

REACTIONS (4)
  - Vomiting [Recovering/Resolving]
  - Diarrhoea [Unknown]
  - Drug effect incomplete [Unknown]
  - Presyncope [Unknown]

NARRATIVE: CASE EVENT DATE: 20170207
